FAERS Safety Report 9705995 (Version 1)
Quarter: 2013Q4

REPORT INFORMATION
  Report Type: Spontaneous
  Country: US (occurrence: US)
  Receive Date: 20131122
  Receipt Date: 20131122
  Transmission Date: 20140711
  Serious: Yes (Hospitalization)
  Sender: FDA-Public Use
  Company Number: US-B.I. PHARMACEUTICALS,INC./RIDGEFIELD-2013-BI-38214BP

PATIENT
  Age: 57 Year
  Sex: Male
  Weight: 105 kg

DRUGS (11)
  1. COMBIVENT [Suspect]
     Indication: CHRONIC OBSTRUCTIVE PULMONARY DISEASE
     Dosage: STRENGTH: 18 MCG / 103 MCG; DAILY DOSE: 144 MCG/ 824 MCG
     Route: 055
     Dates: start: 1996, end: 20130817
  2. CLOPIDOGREL [Concomitant]
     Indication: BLOOD VISCOSITY INCREASED
     Dosage: 75 MG
     Route: 048
     Dates: start: 2007
  3. ALPRAZOLAM [Concomitant]
     Indication: NERVE INJURY
     Dosage: 1.5 MG
     Route: 048
     Dates: start: 2009
  4. MORPHINE SLOW RELEASE [Concomitant]
     Indication: ARTHRALGIA
     Dosage: 60 MG
     Route: 048
     Dates: start: 2003
  5. MORPHINE SLOW RELEASE [Concomitant]
     Indication: BACK PAIN
  6. LYRICA [Concomitant]
     Indication: GROIN PAIN
     Dosage: 600 MG
     Route: 048
     Dates: start: 2008
  7. THEODUR [Concomitant]
     Indication: ASTHMA
     Dosage: 600 MG
     Dates: start: 2003
  8. PANTOPRAZOLE [Concomitant]
     Indication: NAUSEA
     Dosage: 40 MG
     Route: 048
     Dates: start: 2007
  9. PAROXETINE [Concomitant]
     Dosage: 30 MG
     Route: 048
     Dates: start: 2012
  10. PHENERGAN [Concomitant]
     Indication: NAUSEA
     Dosage: 25 MG
     Route: 048
     Dates: start: 2003
  11. FUROSEMIDE [Concomitant]
     Indication: FLUID RETENTION
     Dosage: 20 MG
     Route: 048
     Dates: start: 2012

REACTIONS (2)
  - Chest pain [Recovered/Resolved]
  - Abdominal mass [Recovered/Resolved]
